FAERS Safety Report 4592088-2 (Version None)
Quarter: 2005Q1

REPORT INFORMATION
  Report Type: 
  Country: None (occurrence: None)
  Receive Date: 20050125
  Receipt Date: 20040825
  Transmission Date: 20050727
  Serious: No
  Sender: FDA-Public Use
  Company Number: USA040773737

PATIENT
  Age: 70 Year
  Sex: Female
  Weight: 59 kg

DRUGS (8)
  1. FORTEO [Suspect]
     Indication: OSTEOPOROSIS
     Dosage: 20 UG/1 DAY
     Dates: start: 20040629
  2. PRILOSEC [Concomitant]
  3. ASPIRIN [Concomitant]
  4. ALEVE [Concomitant]
  5. CALCIUM AND VITAMIN D [Concomitant]
  6. VITAMINS NOS [Concomitant]
  7. MULTI-VITAMIN [Concomitant]
  8. PREDNISONE [Concomitant]

REACTIONS (10)
  - ARTHRALGIA [None]
  - ASTHENIA [None]
  - INSOMNIA [None]
  - JOINT RANGE OF MOTION DECREASED [None]
  - MUSCLE TIGHTNESS [None]
  - MUSCULAR WEAKNESS [None]
  - MYALGIA [None]
  - OEDEMA PERIPHERAL [None]
  - PALPITATIONS [None]
  - POLYMYALGIA RHEUMATICA [None]
